FAERS Safety Report 23562935 (Version 2)
Quarter: 2024Q2

REPORT INFORMATION
  Report Type: Spontaneous
  Country: US (occurrence: US)
  Receive Date: 20240226
  Receipt Date: 20240411
  Transmission Date: 20240716
  Serious: No
  Sender: FDA-Public Use
  Company Number: US-SA-SAC20240215001509

PATIENT
  Sex: Female
  Weight: 124 kg

DRUGS (1)
  1. DUPIXENT [Suspect]
     Active Substance: DUPILUMAB
     Indication: Hyperhidrosis
     Dosage: 300 MG, QOW
     Route: 058

REACTIONS (3)
  - Nasal congestion [Unknown]
  - Asthma [Unknown]
  - Product use in unapproved indication [Unknown]
